FAERS Safety Report 8021764 (Version 4)
Quarter: 2013Q3

REPORT INFORMATION
  Report Type: Spontaneous
  Country: US (occurrence: US)
  Receive Date: 20110705
  Receipt Date: 20130815
  Transmission Date: 20140515
  Serious: Yes (Hospitalization, Other)
  Sender: FDA-Public Use
  Company Number: US-ELI_LILLY_AND_COMPANY-US201106008616

PATIENT
  Sex: Female
  Weight: 98.41 kg

DRUGS (23)
  1. ADCIRCA [Suspect]
     Indication: PULMONARY HYPERTENSION
     Dosage: 40 MG, QD
     Route: 048
     Dates: start: 20111117
  2. SYNTHROID [Concomitant]
     Dosage: 88 UG, QD
  3. LEVOXYL [Concomitant]
     Dosage: 88 UG, QD
  4. LASIX                              /00032601/ [Concomitant]
     Dosage: 80 MG, QD
  5. ASPIRIN (E.C.) [Concomitant]
     Dosage: 81 MG, QD
  6. MULTIVITAMIN [Concomitant]
     Dosage: 1 DF, QD
  7. NIACIN [Concomitant]
     Dosage: 500 MG, QD
  8. VITAMIN D [Concomitant]
     Dosage: 3 DF, QD
  9. POTASSIUM [Concomitant]
     Dosage: 20 MEQ, QD
  10. FISH OIL [Concomitant]
     Dosage: 2000 MG, QD
  11. ADVAIR [Concomitant]
     Dosage: 2 DF, QD
     Route: 055
  12. SPIRIVA [Concomitant]
     Dosage: 1 DF, QD
     Route: 055
  13. ALBUTEROL [Concomitant]
     Dosage: 1 DF, QID
  14. CALCIUM WITH VITAMIN D             /00944201/ [Concomitant]
     Dosage: 600 MG, BID
  15. SIMVASTATIN [Concomitant]
     Dosage: 80 MG, QD
  16. GLIPIZIDE [Concomitant]
     Dosage: 5 MG, BID
  17. CELEXA [Concomitant]
     Dosage: 20 MG, QD
  18. METOPROLOL [Concomitant]
     Dosage: 25 MG, BID
  19. SPIRONOLACTONE [Concomitant]
     Dosage: 25 MG, BID
  20. FOSAMAX [Concomitant]
  21. BUMEX [Concomitant]
  22. ATIVAN [Concomitant]
  23. VICODIN [Concomitant]

REACTIONS (3)
  - Ascites [Recovering/Resolving]
  - Right ventricular failure [Recovering/Resolving]
  - Hypotension [Unknown]
